FAERS Safety Report 5961482-7 (Version None)
Quarter: 2008Q4

REPORT INFORMATION
  Report Type: 
  Country: None (occurrence: None)
  Receive Date: 20081121
  Receipt Date: 20081111
  Transmission Date: 20090506
  Serious: Yes (Hospitalization)
  Sender: FDA-Public Use
  Company Number: AT-ELI_LILLY_AND_COMPANY-AT200810005852

PATIENT
  Age: 68 Year
  Sex: Female
  Weight: 53 kg

DRUGS (6)
  1. GEMZAR [Suspect]
     Dosage: 1000 MG/M2, (CYCLE THREE)
     Route: 065
     Dates: start: 20080915
  2. AMARYL [Concomitant]
     Indication: DIABETES MELLITUS
     Dosage: 2 MG, HALF A TABLET A DAY IN THE MORNING
     Route: 065
  3. THYREX [Concomitant]
     Indication: HYPOTHYROIDISM
     Dosage: 0.05 MG, EACH MORNING
     Route: 048
  4. CREON [Concomitant]
     Indication: PANCREATIC INSUFFICIENCY
     Dosage: 10000 IU, 3/D
     Route: 048
  5. PANTOLOC                           /01263201/ [Concomitant]
     Dosage: 40 MG, EACH MORNING
     Route: 065
  6. THROMBO ASS [Concomitant]
     Dosage: 100 MG, EACH MORNING
     Route: 065

REACTIONS (2)
  - LUNG DISORDER [None]
  - OEDEMA PERIPHERAL [None]
